FAERS Safety Report 6970399-0 (Version None)
Quarter: 2010Q3

REPORT INFORMATION
  Report Type: 
  Country: None (occurrence: None)
  Receive Date: 20100908
  Receipt Date: 20100831
  Transmission Date: 20110219
  Serious: Yes (Other)
  Sender: FDA-Public Use
  Company Number: AU-PFIZER INC-2010110360

PATIENT
  Sex: Female

DRUGS (1)
  1. CHAMPIX [Suspect]
     Dosage: UNK

REACTIONS (5)
  - AGITATION [None]
  - ANGER [None]
  - DECREASED APPETITE [None]
  - HEADACHE [None]
  - WITHDRAWAL SYNDROME [None]
